FAERS Safety Report 8805106 (Version 1)
Quarter: 2012Q4

REPORT INFORMATION
  Report Type: 
  Country: US (occurrence: US)
  Receive Date: 20120924
  Receipt Date: 20120924
  Transmission Date: 20130627
  Serious: No
  Sender: FDA-Public Use
  Company Number: US-ALLERGAN-1211044US

PATIENT
  Age: 86 Year
  Sex: Female

DRUGS (4)
  1. LUMIGAN� 0.01% [Suspect]
     Indication: GLAUCOMA
     Dosage: 2 Gtt, qhs
     Route: 047
     Dates: start: 20120808
  2. ARTIFICIAL TEARS                   /00445101/ [Concomitant]
     Indication: DRY EYES
     Dosage: UNK UNK, prn
  3. THYROID MEDICATION [Concomitant]
     Indication: HYPOTHYROIDISM
  4. LOSARTAN [Concomitant]
     Indication: BLOOD PRESSURE HIGH

REACTIONS (5)
  - Vision blurred [Not Recovered/Not Resolved]
  - Asthenia [Not Recovered/Not Resolved]
  - Nervousness [Not Recovered/Not Resolved]
  - Gait disturbance [Not Recovered/Not Resolved]
  - Swelling face [Not Recovered/Not Resolved]
